FAERS Safety Report 4891201-7 (Version None)
Quarter: 2006Q1

REPORT INFORMATION
  Report Type: 
  Country: None (occurrence: None)
  Receive Date: 20060125
  Receipt Date: 20060118
  Transmission Date: 20060701
  Serious: Yes (Disabling)
  Sender: FDA-Public Use
  Company Number: GB-GLAXOSMITHKLINE-B0407072A

PATIENT
  Age: 67 Year
  Sex: Female
  Weight: 95 kg

DRUGS (4)
  1. LITHIUM [Suspect]
     Route: 065
  2. THYROXINE [Concomitant]
     Route: 048
  3. ZYDOL [Concomitant]
     Route: 048
  4. VOLTAREN [Concomitant]
     Dosage: 100MG PER DAY
     Route: 048

REACTIONS (1)
  - OSTEOARTHRITIS [None]
